FAERS Safety Report 19880988 (Version 1)
Quarter: 2021Q3

REPORT INFORMATION
  Report Type: Report from Study
  Country: IT (occurrence: IT)
  Receive Date: 20210924
  Receipt Date: 20210924
  Transmission Date: 20211014
  Serious: Yes (Hospitalization)
  Sender: FDA-Public Use
  Company Number: IT-TEVA-2021-IT-1956159

PATIENT
  Age: 57 Year
  Sex: Male

DRUGS (9)
  1. OMEPRAZOLE. [Suspect]
     Active Substance: OMEPRAZOLE
     Dosage: 1DOSAGEFORM
     Route: 048
  2. BACTRIM [Concomitant]
     Active Substance: SULFAMETHOXAZOLE\TRIMETHOPRIM
  3. RIOPAN 800 MG COMPRESSE MASTICABILI [Concomitant]
  4. BORTEZOMIB. [Suspect]
     Active Substance: BORTEZOMIB
     Indication: PLASMA CELL MYELOMA
     Dosage: 1DOSAGEFORM
     Route: 042
  5. LYRICA [Concomitant]
     Active Substance: PREGABALIN
  6. IPSTYL 120 MG SOLUZIONE INIETTABILE [Concomitant]
  7. TAPENTADOL [Suspect]
     Active Substance: TAPENTADOL
     Indication: NEUROPATHY PERIPHERAL
     Dosage: 1DOSAGEFORM
     Route: 048
  8. ACICLOVIR [Concomitant]
     Active Substance: ACYCLOVIR
     Dosage: 400MILLIGRAM
     Route: 048
  9. NORVASC [Concomitant]
     Active Substance: AMLODIPINE BESYLATE

REACTIONS (2)
  - Inappropriate antidiuretic hormone secretion [Recovering/Resolving]
  - Hyponatraemia [Recovering/Resolving]

NARRATIVE: CASE EVENT DATE: 20210727
